FAERS Safety Report 24376476 (Version 1)
Quarter: 2024Q3

REPORT INFORMATION
  Report Type: Spontaneous
  Country: SE (occurrence: SE)
  Receive Date: 20240930
  Receipt Date: 20240930
  Transmission Date: 20241017
  Serious: Yes (Life-Threatening, Hospitalization)
  Sender: MYLAN
  Company Number: SE-AstraZeneca-2024A209706

PATIENT
  Age: 71 Year
  Sex: Male

DRUGS (11)
  1. TICAGRELOR [Suspect]
     Active Substance: TICAGRELOR
     Indication: Dressler^s syndrome
     Dosage: 90 MILLIGRAM, BID (12 HOURS, LOADING DOSE 4 TABLETS, THEN 1 TABLET)
     Route: 048
     Dates: start: 20240910, end: 20240911
  2. TICAGRELOR [Suspect]
     Active Substance: TICAGRELOR
     Indication: Anticoagulant therapy
  3. HEPARIN [Concomitant]
     Active Substance: HEPARIN SODIUM
     Indication: Angiogram
     Dosage: 700 INTERNATIONAL UNIT,1 TOTAL
     Route: 042
     Dates: start: 20240910, end: 20240910
  4. OMEPRAZOLE [Concomitant]
     Active Substance: OMEPRAZOLE
     Indication: Gastric haemorrhage
     Dosage: UNK
     Route: 048
     Dates: start: 20240910
  5. OMEPRAZOLE [Concomitant]
     Active Substance: OMEPRAZOLE
     Indication: Dyspepsia
     Dosage: UNK
     Route: 065
  6. ASPIRIN [Concomitant]
     Active Substance: ASPIRIN
     Dosage: UNK (LOADING DOSE 4 TABLETS, THEN 1 TABLET ))
     Route: 065
     Dates: start: 20240909, end: 20240911
  7. OMEPRAZOLE [Concomitant]
     Active Substance: OMEPRAZOLE
     Dosage: 20 MILLIGRAM, QD
     Route: 065
     Dates: start: 20221103
  8. METOPROLOL [Concomitant]
     Active Substance: METOPROLOL
     Dosage: 50 MILLIGRAM,1 TOTAL
     Route: 065
     Dates: start: 20240910
  9. DIAZEPAM [Concomitant]
     Active Substance: DIAZEPAM
     Dosage: 5 MILLIGRAM,1 TOTAL
     Route: 065
     Dates: start: 20240910
  10. ATORVASTATIN [Concomitant]
     Active Substance: ATORVASTATIN
     Dosage: 40 MILLIGRAM
     Route: 065
     Dates: start: 20240910
  11. CANDESARTAN [Concomitant]
     Active Substance: CANDESARTAN
     Dosage: 4 MILLIGRAM, BID (12 HOURS)
     Route: 065
     Dates: start: 20240911

REACTIONS (1)
  - Thrombocytopenia [Recovering/Resolving]

NARRATIVE: CASE EVENT DATE: 20240911
